FAERS Safety Report 7213624-3 (Version None)
Quarter: 2011Q1

REPORT INFORMATION
  Report Type: 
  Country: None (occurrence: None)
  Receive Date: 20110106
  Receipt Date: 20101227
  Transmission Date: 20110831
  Serious: Yes (Other)
  Sender: FDA-Public Use
  Company Number: BR-EISAI INC.-E3810-04341-SPO-BR

PATIENT
  Age: 37 Year
  Sex: Female
  Weight: 80 kg

DRUGS (4)
  1. PARIET (RABEPRAZOLE) [Suspect]
     Indication: GASTRITIS
     Route: 048
     Dates: start: 20101218, end: 20101220
  2. PARIET (RABEPRAZOLE) [Suspect]
     Route: 048
     Dates: start: 20101225, end: 20101225
  3. MICROPIL [Concomitant]
  4. FOLIC ACID [Concomitant]

REACTIONS (13)
  - SYNCOPE [None]
  - LACRIMATION INCREASED [None]
  - COLD SWEAT [None]
  - HEADACHE [None]
  - YAWNING [None]
  - ERUCTATION [None]
  - CHEST PAIN [None]
  - NECK PAIN [None]
  - DIZZINESS [None]
  - BODY TEMPERATURE [None]
  - ABDOMINAL PAIN UPPER [None]
  - PARAESTHESIA [None]
  - SENSATION OF HEAVINESS [None]
